FAERS Safety Report 7360338-5 (Version None)
Quarter: 2011Q1

REPORT INFORMATION
  Report Type: 
  Country: None (occurrence: None)
  Receive Date: 20110310
  Receipt Date: 20110228
  Transmission Date: 20110831
  Serious: Yes (Other)
  Sender: FDA-Public Use
  Company Number: 028361

PATIENT
  Sex: Female

DRUGS (1)
  1. NEUPRO [Suspect]
     Dosage: 8 MG SINCE 3 YEARS

REACTIONS (5)
  - EYE DISORDER [None]
  - ARRHYTHMIA [None]
  - HYPERTENSION [None]
  - EXTRASYSTOLES [None]
  - LENS DISORDER [None]
